FAERS Safety Report 9250020 (Version 2)
Quarter: 2013Q2

REPORT INFORMATION
  Report Type: Report from Study
  Country: CA (occurrence: CA)
  Receive Date: 20130424
  Receipt Date: 20130604
  Transmission Date: 20140414
  Serious: Yes (Other)
  Sender: FDA-Public Use
  Company Number: CA-ROCHE-1217719

PATIENT
  Sex: Female
  Weight: 49.9 kg

DRUGS (5)
  1. XELODA [Suspect]
     Indication: COLON CANCER
     Route: 048
     Dates: start: 201104, end: 201107
  2. XELODA [Suspect]
     Route: 048
     Dates: start: 20130414
  3. AVAPRO [Concomitant]
  4. ATENOLOL [Concomitant]
  5. ASPIRIN [Concomitant]

REACTIONS (2)
  - Disease progression [Not Recovered/Not Resolved]
  - Drug intolerance [Unknown]
